FAERS Safety Report 22155599 (Version 1)
Quarter: 2023Q1

REPORT INFORMATION
  Report Type: Spontaneous
  Country: IE (occurrence: IE)
  Receive Date: 20230330
  Receipt Date: 20230330
  Transmission Date: 20230417
  Serious: Yes (Death, Other)
  Sender: FDA-Public Use
  Company Number: IE-BoehringerIngelheim-2023-BI-228468

PATIENT
  Age: 74 Year
  Sex: Male

DRUGS (1)
  1. JENTADUETO [Suspect]
     Active Substance: LINAGLIPTIN\METFORMIN HYDROCHLORIDE
     Indication: Product used for unknown indication
     Dosage: PACK SIZE 56- 1 TWICE  DAILY
     Route: 048
     Dates: start: 20221125

REACTIONS (1)
  - Death [Fatal]

NARRATIVE: CASE EVENT DATE: 20230329
